FAERS Safety Report 5799296-3 (Version None)
Quarter: 2008Q3

REPORT INFORMATION
  Report Type: 
  Country: None (occurrence: None)
  Receive Date: 20080702
  Receipt Date: 20080619
  Transmission Date: 20090109
  Serious: Yes (Other)
  Sender: FDA-Public Use
  Company Number: US-PFIZER INC-2008052330

PATIENT
  Sex: Female

DRUGS (1)
  1. CHANTIX [Suspect]
     Indication: EX-TOBACCO USER
     Dates: start: 20080316, end: 20080326

REACTIONS (3)
  - FEELINGS OF WORTHLESSNESS [None]
  - NEGATIVE THOUGHTS [None]
  - NIGHTMARE [None]
